FAERS Safety Report 24193388 (Version 4)
Quarter: 2024Q4

REPORT INFORMATION
  Report Type: Report from Study
  Country: CA (occurrence: CA)
  Receive Date: 20240809
  Receipt Date: 20241205
  Transmission Date: 20250114
  Serious: Yes (Other)
  Sender: ALEXION PHARMACEUTICALS
  Company Number: 2024A178209

PATIENT
  Age: 46 Year

DRUGS (20)
  1. FASENRA [Suspect]
     Active Substance: BENRALIZUMAB
     Indication: Asthma
     Dosage: 30 MILLIGRAM, UNK, FREQUENCY: UNK
  2. FASENRA [Suspect]
     Active Substance: BENRALIZUMAB
     Dosage: 30 MILLIGRAM, UNK, FREQUENCY: UNK
  3. FASENRA [Suspect]
     Active Substance: BENRALIZUMAB
     Dosage: 30 MILLIGRAM, UNK, FREQUENCY: UNK
  4. FASENRA [Suspect]
     Active Substance: BENRALIZUMAB
     Dosage: 30 MILLIGRAM, UNK, FREQUENCY: UNK
  5. FASENRA [Suspect]
     Active Substance: BENRALIZUMAB
     Dosage: UNK
  6. FASENRA [Suspect]
     Active Substance: BENRALIZUMAB
     Dosage: UNK
  7. FASENRA [Suspect]
     Active Substance: BENRALIZUMAB
     Dosage: UNK
  8. FASENRA [Suspect]
     Active Substance: BENRALIZUMAB
     Dosage: UNK
  9. FASENRA [Suspect]
     Active Substance: BENRALIZUMAB
     Dosage: UNK
  10. FASENRA [Suspect]
     Active Substance: BENRALIZUMAB
     Dosage: UNK
  11. FLOVENT [Concomitant]
     Active Substance: FLUTICASONE PROPIONATE
  12. FLOVENT [Concomitant]
     Active Substance: FLUTICASONE PROPIONATE
     Route: 065
  13. SPIRIVA [Concomitant]
     Active Substance: TIOTROPIUM BROMIDE MONOHYDRATE
     Dosage: 2 PUFF ONCE A DAY
  14. SPIRIVA [Concomitant]
     Active Substance: TIOTROPIUM BROMIDE MONOHYDRATE
     Dosage: 2 PUFF ONCE A DAY
     Route: 065
  15. ADVAIR HFA [Concomitant]
     Active Substance: FLUTICASONE PROPIONATE\SALMETEROL XINAFOATE
  16. ADVAIR HFA [Concomitant]
     Active Substance: FLUTICASONE PROPIONATE\SALMETEROL XINAFOATE
     Route: 065
  17. Ventol [Concomitant]
  18. Ventol [Concomitant]
     Route: 065
  19. ATROVENT [Concomitant]
     Active Substance: IPRATROPIUM BROMIDE
  20. ATROVENT [Concomitant]
     Active Substance: IPRATROPIUM BROMIDE
     Route: 065

REACTIONS (1)
  - Cartilage injury [Unknown]
